FAERS Safety Report 21471422 (Version 1)
Quarter: 2022Q4

REPORT INFORMATION
  Report Type: Spontaneous
  Country: US (occurrence: None)
  Receive Date: 20221017
  Receipt Date: 20221017
  Transmission Date: 20230113
  Serious: Yes (Hospitalization, Other)
  Sender: FDA-Public Use
  Company Number: None

PATIENT
  Age: 38 Year
  Sex: Male
  Weight: 103.5 kg

DRUGS (3)
  1. SULFAMETHOXAZOLE AND TRIMETHOPRIM [Suspect]
     Active Substance: SULFAMETHOXAZOLE\TRIMETHOPRIM
     Indication: Localised infection
     Dosage: FREQUENCY : TWICE A DAY;?
     Route: 048
     Dates: start: 20220929, end: 20221009
  2. CEPHALEXIN [Concomitant]
     Active Substance: CEPHALEXIN
     Dates: start: 20220929, end: 20221009
  3. IBUPROFEN [Concomitant]
     Active Substance: IBUPROFEN
     Dates: start: 20220929, end: 20221009

REACTIONS (5)
  - Rash [None]
  - Oropharyngeal pain [None]
  - Burning sensation [None]
  - Dehydration [None]
  - Cheilitis [None]

NARRATIVE: CASE EVENT DATE: 20221012
